FAERS Safety Report 11766714 (Version 1)
Quarter: 2015Q4

REPORT INFORMATION
  Report Type: Spontaneous
  Country: US (occurrence: US)
  Receive Date: 20151123
  Receipt Date: 20151123
  Transmission Date: 20160304
  Serious: No
  Sender: FDA-Public Use
  Company Number: US-ELI_LILLY_AND_COMPANY-US201511004821

PATIENT
  Sex: Male

DRUGS (1)
  1. FORTEO [Suspect]
     Active Substance: TERIPARATIDE
     Indication: OSTEOPOROSIS
     Dosage: UNK, QD
     Route: 065
     Dates: start: 20151104

REACTIONS (8)
  - Nasopharyngitis [Unknown]
  - Nasal disorder [Unknown]
  - Malaise [Unknown]
  - Dry mouth [Unknown]
  - Drug dose omission [Unknown]
  - Secretion discharge [Unknown]
  - Asthenia [Unknown]
  - Disturbance in attention [Unknown]

NARRATIVE: CASE EVENT DATE: 20151110
